FAERS Safety Report 16783414 (Version 2)
Quarter: 2020Q1

REPORT INFORMATION
  Report Type: Report from Study
  Country: DE (occurrence: DE)
  Receive Date: 20190907
  Receipt Date: 20200217
  Transmission Date: 20200409
  Serious: Yes (Death, Hospitalization)
  Sender: FDA-Public Use
  Company Number: DE-TEVA-2019-DE-1103279

PATIENT
  Age: 74 Year
  Sex: Female
  Weight: 91 kg

DRUGS (2)
  1. DEXAMETHASONE. [Suspect]
     Active Substance: DEXAMETHASONE
     Indication: PRODUCT USED FOR UNKNOWN INDICATION
     Route: 065
  2. REVLIMID [Suspect]
     Active Substance: LENALIDOMIDE
     Indication: PRODUCT USED FOR UNKNOWN INDICATION
     Dosage: 20 MILLIGRAM
     Route: 048
     Dates: start: 20080531, end: 20080603

REACTIONS (6)
  - Infection [Fatal]
  - Granulocytosis [Fatal]
  - Immunosuppression [Fatal]
  - Hypercalcaemia [Fatal]
  - Hyperviscosity syndrome [Fatal]
  - Asthenia [Fatal]

NARRATIVE: CASE EVENT DATE: 20080604
